FAERS Safety Report 5280451-6 (Version None)
Quarter: 2007Q1

REPORT INFORMATION
  Report Type: 
  Country: None (occurrence: None)
  Receive Date: 20070329
  Receipt Date: 20070319
  Transmission Date: 20070707
  Serious: Yes (Life-Threatening)
  Sender: FDA-Public Use
  Company Number: TR-AVENTIS-200712471GDDC

PATIENT
  Age: 7 Year

DRUGS (2)
  1. CEFOTAXIME [Suspect]
     Dosage: DOSE: UNK
  2. VANCOMYCIN [Suspect]
     Dosage: DOSE: UNK

REACTIONS (1)
  - DRUG RASH WITH EOSINOPHILIA AND SYSTEMIC SYMPTOMS [None]
